FAERS Safety Report 11913289 (Version 1)
Quarter: 2016Q1

REPORT INFORMATION
  Report Type: Spontaneous
  Country: US (occurrence: None)
  Receive Date: 20160112
  Receipt Date: 20160112
  Transmission Date: 20160526
  Serious: Yes (Other)
  Sender: FDA-Public Use
  Company Number: None

PATIENT
  Age: 53 Year
  Sex: Female
  Weight: 97.5 kg

DRUGS (1)
  1. CONTRAVE [Suspect]
     Active Substance: BUPROPION HYDROCHLORIDE\NALTREXONE HYDROCHLORIDE
     Indication: WEIGHT DECREASED
     Dosage: OCTOBER-DECEMBER
     Route: 048

REACTIONS (5)
  - Tremor [None]
  - Hot flush [None]
  - Leukocytosis [None]
  - Dizziness [None]
  - Chills [None]

NARRATIVE: CASE EVENT DATE: 20151207
